FAERS Safety Report 14951358 (Version 1)
Quarter: 2018Q2

REPORT INFORMATION
  Report Type: Spontaneous
  Country: ES (occurrence: ES)
  Receive Date: 20180530
  Receipt Date: 20180530
  Transmission Date: 20180711
  Serious: Yes (Disabling)
  Sender: FDA-Public Use
  Company Number: ES-TEVA-2018-ES-898382

PATIENT
  Age: 24 Year
  Sex: Male

DRUGS (2)
  1. TOBRAMICINA (3141A) [Suspect]
     Active Substance: TOBRAMYCIN
     Dates: start: 20170828, end: 20170911
  2. TOBRAMICINA (3141A) [Suspect]
     Active Substance: TOBRAMYCIN
     Route: 065
     Dates: start: 20160804, end: 20160822

REACTIONS (1)
  - Hypoacusis [Not Recovered/Not Resolved]

NARRATIVE: CASE EVENT DATE: 201801
